FAERS Safety Report 18006956 (Version 1)
Quarter: 2020Q3

REPORT INFORMATION
  Report Type: Spontaneous
  Country: IL (occurrence: IL)
  Receive Date: 20200710
  Receipt Date: 20200710
  Transmission Date: 20201103
  Serious: Yes (Other)
  Sender: FDA-Public Use
  Company Number: IL-IGSA-SR10010506

PATIENT
  Sex: Female
  Weight: 69 kg

DRUGS (3)
  1. GAMUNEX?C [Suspect]
     Active Substance: HUMAN IMMUNOGLOBULIN G
     Indication: IMMUNODEFICIENCY COMMON VARIABLE
     Dosage: 20 GRAM, Q.3WK.
     Route: 042
     Dates: start: 2017, end: 2018
  2. GAMUNEX?C [Suspect]
     Active Substance: HUMAN IMMUNOGLOBULIN G
     Dosage: 10 GRAM
     Route: 058
     Dates: start: 2020
  3. GAMUNEX?C [Suspect]
     Active Substance: HUMAN IMMUNOGLOBULIN G
     Dosage: 10 GRAM
     Route: 058
     Dates: start: 2018

REACTIONS (5)
  - Infusion site erythema [Recovered/Resolved]
  - Haemorrhage [Recovered/Resolved]
  - Asthenia [Recovered/Resolved]
  - Infusion site swelling [Recovered/Resolved]
  - Rash [Recovered/Resolved]
